FAERS Safety Report 7815907 (Version 4)
Quarter: 2013Q4

REPORT INFORMATION
  Report Type: Report from Study
  Country: CA (occurrence: CA)
  Receive Date: 20110216
  Receipt Date: 20131205
  Transmission Date: 20140711
  Serious: Yes (Death)
  Sender: FDA-Public Use
  Company Number: CA-PFIZER INC-2011032541

PATIENT
  Age: 82 Year
  Sex: Female

DRUGS (2)
  1. REVATIO [Suspect]
     Indication: PULMONARY HYPERTENSION
     Dosage: 20 MG, 3X/DAY
     Dates: start: 20070520
  2. REVATIO [Suspect]
     Dosage: 10 MG, 3X/DAY
     Route: 048
     Dates: start: 20080801

REACTIONS (1)
  - Death [Fatal]
